FAERS Safety Report 6243867-7 (Version None)
Quarter: 2009Q2

REPORT INFORMATION
  Report Type: 
  Country: None (occurrence: None)
  Receive Date: 20090624
  Receipt Date: 20090618
  Transmission Date: 20091009
  Serious: Yes (Other)
  Sender: FDA-Public Use
  Company Number: US-MERCK-0904USA01131

PATIENT
  Age: 58 Year
  Sex: Female
  Weight: 76 kg

DRUGS (13)
  1. TRUSOPT [Suspect]
     Indication: INTRAOCULAR PRESSURE INCREASED
     Route: 047
     Dates: start: 20040621
  2. TRUSOPT [Suspect]
     Route: 047
     Dates: start: 20060213, end: 20071101
  3. TRUSOPT [Suspect]
     Route: 047
     Dates: start: 20090223
  4. BETOPTIC [Suspect]
     Indication: INTRAOCULAR PRESSURE INCREASED
     Route: 047
     Dates: start: 20040615
  5. XALATAN [Suspect]
     Indication: INTRAOCULAR PRESSURE INCREASED
     Route: 047
     Dates: start: 20040521, end: 20040701
  6. XALATAN [Suspect]
     Route: 047
     Dates: start: 20051001, end: 20060901
  7. XALATAN [Suspect]
     Route: 047
     Dates: start: 20060101, end: 20071101
  8. XALATAN [Suspect]
     Route: 047
     Dates: start: 20080101, end: 20090319
  9. ALPHAGAN [Suspect]
     Indication: INTRAOCULAR PRESSURE INCREASED
     Route: 047
     Dates: start: 20040615
  10. ALPHAGAN [Suspect]
     Route: 065
     Dates: start: 20060213, end: 20071101
  11. ALPHAGAN [Suspect]
     Route: 065
     Dates: start: 20090223, end: 20090101
  12. BETIMOL [Suspect]
     Indication: ILL-DEFINED DISORDER
     Route: 065
  13. COSOPT [Suspect]
     Indication: ILL-DEFINED DISORDER
     Route: 047

REACTIONS (7)
  - ABNORMAL DREAMS [None]
  - COUGH [None]
  - DYSPNOEA [None]
  - GROWTH OF EYELASHES [None]
  - NASAL CONGESTION [None]
  - PAIN [None]
  - TINNITUS [None]
